FAERS Safety Report 7655841-4 (Version None)
Quarter: 2011Q3

REPORT INFORMATION
  Report Type: 
  Country: None (occurrence: None)
  Receive Date: 20110804
  Receipt Date: 20110725
  Transmission Date: 20111222
  Serious: No
  Sender: FDA-Public Use
  Company Number: US-TYCO HEALTHCARE/MALLINCKRODT-T201101477

PATIENT
  Sex: Female

DRUGS (2)
  1. HYDROCODONE BITARTRATE AND ACETAMINOPHEN [Suspect]
     Indication: MIGRAINE
  2. HYDROCODONE BITARTRATE AND ACETAMINOPHEN [Suspect]
     Indication: NECK PAIN

REACTIONS (3)
  - DRUG EFFECT DECREASED [None]
  - MALAISE [None]
  - HEADACHE [None]
